FAERS Safety Report 16543480 (Version 1)
Quarter: 2019Q3

REPORT INFORMATION
  Report Type: Spontaneous
  Country: DE (occurrence: DE)
  Receive Date: 20190709
  Receipt Date: 20190709
  Transmission Date: 20191004
  Serious: Yes (Hospitalization)
  Sender: FDA-Public Use
  Company Number: DE-ACCORD-137707

PATIENT
  Age: 40 Year
  Sex: Female
  Weight: 56 kg

DRUGS (14)
  1. AFLIBERCEPT [Suspect]
     Active Substance: AFLIBERCEPT
     Indication: PRODUCT USED FOR UNKNOWN INDICATION
     Dosage: 4 MG / KG BODY WEIGHT, ACCORDING LAST ON 10.11.2017
     Route: 042
  2. HALOPERIDOL. [Concomitant]
     Active Substance: HALOPERIDOL
     Dosage: 3 GTT, IF NECESSARY
     Route: 048
  3. MISTEL [Concomitant]
     Dosage: 0.2 MG, 1-1-1-0
     Route: 048
  4. LOPERAMIDE [Concomitant]
     Active Substance: LOPERAMIDE
     Dosage: 2 MG, IF NECESSARY
     Route: 048
  5. SANCUSO [Concomitant]
     Active Substance: GRANISETRON
     Dosage: 3.1 MG, OVER 24 H
     Route: 062
  6. DEXAMETHASONE. [Concomitant]
     Active Substance: DEXAMETHASONE
     Dosage: 8 MG, ACCORDING TO THE SCHEME
     Route: 048
  7. ESCITALOPRAM [Concomitant]
     Active Substance: ESCITALOPRAM OXALATE
     Dosage: 20 MG, 1-0-0-0
     Route: 048
  8. NEUPOGEN [Concomitant]
     Active Substance: FILGRASTIM
     Dosage: 48 MILLION I.E., AFTER LABORATORY, INJECTION / INFUSION SOLUTION
     Route: 042
  9. OXALIPLATIN. [Suspect]
     Active Substance: OXALIPLATIN
     Indication: PRODUCT USED FOR UNKNOWN INDICATION
     Dosage: 50 MG / M2, MOST RECENTLY 10.11.2017
     Route: 042
  10. VITIS COMP. [Concomitant]
     Dosage: 20/40/20/40 MG, 1-1-1-0
     Route: 048
  11. CHRISTROSE [Concomitant]
     Dosage: NK NK, NK,
     Route: 048
  12. FLUOROURACIL. [Suspect]
     Active Substance: FLUOROURACIL
     Indication: PRODUCT USED FOR UNKNOWN INDICATION
     Dosage: 2800 MG / M2, MOST RECENTLY 10.11.2017
     Route: 042
  13. CALCIUM LEVOFOLINATE [Suspect]
     Active Substance: LEVOLEUCOVORIN CALCIUM
     Indication: PRODUCT USED FOR UNKNOWN INDICATION
     Dosage: 200 MG / M2, MOST RECENTLY 10.11.2017
     Route: 042
  14. ONDANSETRON [Concomitant]
     Active Substance: ONDANSETRON
     Dosage: 8 MG, ACCORDING TO THE SCHEME
     Route: 048

REACTIONS (6)
  - Abdominal pain lower [Unknown]
  - Fatigue [Unknown]
  - Headache [Unknown]
  - Pyrexia [Unknown]
  - Abdominal pain upper [Unknown]
  - General physical health deterioration [Unknown]
